FAERS Safety Report 13626578 (Version 1)
Quarter: 2017Q2

REPORT INFORMATION
  Report Type: Spontaneous
  Country: US (occurrence: US)
  Receive Date: 20170608
  Receipt Date: 20170608
  Transmission Date: 20170830
  Serious: No
  Sender: FDA-Public Use
  Company Number: US-009507513-1706USA002747

PATIENT
  Sex: Female
  Weight: 53.52 kg

DRUGS (1)
  1. NUVARING [Suspect]
     Active Substance: ETHINYL ESTRADIOL\ETONOGESTREL
     Indication: CONTRACEPTION
     Dosage: 3 WEEKS IN, 1 WEEK OUT
     Route: 067
     Dates: start: 20170516

REACTIONS (5)
  - Mood swings [Unknown]
  - Nausea [Unknown]
  - Libido decreased [Unknown]
  - Migraine [Unknown]
  - Emotional disorder [Unknown]

NARRATIVE: CASE EVENT DATE: 2017
